APPROVED DRUG PRODUCT: EMTRICITABINE AND TENOFOVIR DISOPROXIL FUMARATE
Active Ingredient: EMTRICITABINE; TENOFOVIR DISOPROXIL FUMARATE
Strength: 100MG;150MG
Dosage Form/Route: TABLET;ORAL
Application: A201806 | Product #002 | TE Code: AB
Applicant: HETERO LABS LTD UNIT III
Approved: Mar 3, 2025 | RLD: No | RS: No | Type: RX